FAERS Safety Report 4493121-9 (Version None)
Quarter: 2004Q4

REPORT INFORMATION
  Report Type: 
  Country: None (occurrence: None)
  Receive Date: 20041104
  Receipt Date: 20041025
  Transmission Date: 20050328
  Serious: Yes (Other)
  Sender: FDA-Public Use
  Company Number: AU-GLAXOSMITHKLINE-B0350320A

PATIENT
  Sex: Male

DRUGS (2)
  1. NARAMIG [Suspect]
  2. UNSPECIFIED SSRI [Concomitant]

REACTIONS (1)
  - DELIRIUM [None]
